FAERS Safety Report 13130698 (Version 1)
Quarter: 2017Q1

REPORT INFORMATION
  Report Type: Spontaneous
  Country: DE (occurrence: DE)
  Receive Date: 20170119
  Receipt Date: 20170119
  Transmission Date: 20170428
  Serious: Yes (Other)
  Sender: FDA-Public Use
  Company Number: DE-PFIZER INC-2017014558

PATIENT
  Age: 88 Year
  Sex: Female

DRUGS (10)
  1. VOMEX [Concomitant]
     Active Substance: DIMENHYDRINATE
     Dosage: 100 MG, 1X/DAY
     Route: 048
     Dates: start: 20150907, end: 20150911
  2. SERTRALINE HCL [Suspect]
     Active Substance: SERTRALINE HYDROCHLORIDE
     Dosage: 25 MG, 1X/DAY
     Route: 048
     Dates: start: 201502, end: 20150910
  3. REKAWAN [Concomitant]
     Active Substance: POTASSIUM CHLORIDE
     Dosage: 1 DF, 1X/DAY, FOR A LONG TIME
     Route: 048
  4. PREGABALIN. [Suspect]
     Active Substance: PREGABALIN
     Dosage: 12.5 MG, 1X/DAY
     Route: 048
     Dates: start: 20150909
  5. MELPERONE [Suspect]
     Active Substance: MELPERONE
     Dosage: 100 MG, 1X/DAY, FOR A LONG TIME
     Route: 048
  6. PANTOPRAZOLE [Concomitant]
     Active Substance: PANTOPRAZOLE SODIUM
     Dosage: 40 MG, 1X/DAY, FOR A LONG TIME
     Route: 048
  7. ALLOPURINOL. [Concomitant]
     Active Substance: ALLOPURINOL
     Dosage: 300 MG, 1X/DAY, FOR A LONG TIME
     Route: 048
  8. PREGABALIN. [Suspect]
     Active Substance: PREGABALIN
     Dosage: 25 MG, 1X/DAY
     Route: 048
     Dates: start: 20150910
  9. ENALAPRIL [Concomitant]
     Active Substance: ENALAPRIL
     Dosage: 10 MG, 1X/DAY, FOR A LONG TIME
     Route: 048
  10. ZOPICLONE [Concomitant]
     Active Substance: ZOPICLONE
     Dosage: 3.75 MG, 1X/DAY, FOR A LONG TIME
     Route: 048

REACTIONS (1)
  - Pleurothotonus [Recovered/Resolved]

NARRATIVE: CASE EVENT DATE: 20150910
